FAERS Safety Report 8948186 (Version 1)
Quarter: 2012Q4

REPORT INFORMATION
  Report Type: Spontaneous
  Country: GB (occurrence: None)
  Receive Date: 20121127
  Receipt Date: 20121127
  Transmission Date: 20130627
  Serious: Yes (Life-Threatening)
  Sender: FDA-Public Use
  Company Number: 2012-19973

PATIENT
  Age: 46 Year
  Sex: Male

DRUGS (4)
  1. GEMCITABINE [Suspect]
     Indication: LYMPHOMA
     Route: 042
     Dates: start: 20121022, end: 20121025
  2. VINORELBINE [Suspect]
     Indication: LYMPHOMA
     Route: 042
     Dates: start: 20121022, end: 20121022
  3. ALOXI [Suspect]
     Indication: LYMPHOMA
     Route: 042
     Dates: start: 20121022, end: 20121025
  4. HOLOXAN [Suspect]
     Indication: LYMPHOMA
     Route: 042
     Dates: start: 20121022, end: 20121025

REACTIONS (3)
  - Stevens-Johnson syndrome [None]
  - Neutropenia [None]
  - Hyperpyrexia [None]
